FAERS Safety Report 9832046 (Version 2)
Quarter: 2014Q1

REPORT INFORMATION
  Report Type: Spontaneous
  Country: IT (occurrence: IT)
  Receive Date: 20140121
  Receipt Date: 20140225
  Transmission Date: 20141002
  Serious: Yes (Hospitalization)
  Sender: FDA-Public Use
  Company Number: PHHY2014IT005015

PATIENT
  Age: 88 Year
  Sex: Female

DRUGS (5)
  1. EXELON PATCH [Suspect]
     Indication: DEMENTIA ALZHEIMER^S TYPE
     Dosage: 4.6 MG/24HRS, DAILY
     Route: 062
     Dates: start: 20120501
  2. EXELON PATCH [Suspect]
     Dosage: 9.5 MG/24HRS, DAILY
     Route: 062
     Dates: end: 20121129
  3. PANTOPRAZOLE [Concomitant]
     Dosage: 20 MG, UNK
  4. ALENDRONIC ACID [Concomitant]
     Dosage: 70 MG, UNK
     Route: 048
  5. CARDIRENE [Concomitant]
     Dosage: 160 MG, UNK
     Route: 048

REACTIONS (4)
  - Gastrointestinal disorder [Recovered/Resolved]
  - Ventricular tachyarrhythmia [Recovered/Resolved]
  - Asthenia [Recovered/Resolved]
  - Malaise [Recovered/Resolved]
